FAERS Safety Report 23223136 (Version 1)
Quarter: 2023Q4

REPORT INFORMATION
  Report Type: Other
  Country: None (occurrence: US)
  Receive Date: 20231123
  Receipt Date: 20231123
  Transmission Date: 20240110
  Serious: Yes (Life-Threatening, Hospitalization)
  Sender: FDA-Public Use
  Company Number: US-B.Braun Medical Inc.-2148605

PATIENT
  Sex: Male

DRUGS (6)
  1. MEROPENEM\SODIUM CHLORIDE [Suspect]
     Active Substance: MEROPENEM\SODIUM CHLORIDE
     Indication: Neutropenic sepsis
  2. VANCOMYCIN [Suspect]
     Active Substance: VANCOMYCIN
  3. CISPLATIN [Suspect]
     Active Substance: CISPLATIN
  4. ETOPOSIDE [Suspect]
     Active Substance: ETOPOSIDE
  5. PIPERACILLIN AND TAZOBACTAM [Concomitant]
     Active Substance: PIPERACILLIN SODIUM\TAZOBACTAM SODIUM
  6. MICAFUNGIN [Concomitant]
     Active Substance: MICAFUNGIN SODIUM

REACTIONS (1)
  - Linear IgA disease [None]
